FAERS Safety Report 7526007-3 (Version None)
Quarter: 2011Q2

REPORT INFORMATION
  Report Type: 
  Country: None (occurrence: None)
  Receive Date: 20110606
  Receipt Date: 20110523
  Transmission Date: 20111010
  Serious: Yes (Hospitalization)
  Sender: FDA-Public Use
  Company Number: IT-CELGENEUS-083-50794-11050229

PATIENT
  Sex: Female

DRUGS (6)
  1. EPREX [Concomitant]
     Dosage: 80IU, IN THOUSAND
     Route: 058
  2. ZOVIRAX [Concomitant]
     Indication: HERPES SIMPLEX
     Route: 048
     Dates: start: 20110427, end: 20110503
  3. ZOFRAN [Concomitant]
     Indication: PROPHYLAXIS
     Route: 048
     Dates: start: 20110416, end: 20110422
  4. ALLOPURINOL [Concomitant]
     Route: 048
     Dates: start: 20110410, end: 20110503
  5. VIDAZA [Suspect]
     Route: 058
     Dates: start: 20110416, end: 20110422
  6. EUTIROX [Concomitant]
     Indication: HYPOTHYROIDISM
     Route: 048

REACTIONS (1)
  - HAEMOLYTIC ANAEMIA [None]
